FAERS Safety Report 7212920-3 (Version None)
Quarter: 2011Q1

REPORT INFORMATION
  Report Type: 
  Country: None (occurrence: None)
  Receive Date: 20110106
  Receipt Date: 20101227
  Transmission Date: 20110831
  Serious: Yes (Hospitalization)
  Sender: FDA-Public Use
  Company Number: FR-EISAI INC.-E3810-04337-SPO-FR

PATIENT
  Sex: Female

DRUGS (3)
  1. MORPHINE CHLORHYDRATE AGUETTANT [Suspect]
     Route: 040
     Dates: start: 20101025, end: 20101026
  2. ACETAMINOPHEN W/ PROPOXYPHENE HCL [Suspect]
     Route: 048
     Dates: start: 20101027, end: 20101028
  3. PARIET (RABEPRAZOLE) [Suspect]
     Route: 048
     Dates: start: 20101026, end: 20101029

REACTIONS (1)
  - PANCREATITIS ACUTE [None]
